FAERS Safety Report 6013988-2 (Version None)
Quarter: 2008Q4

REPORT INFORMATION
  Report Type: 
  Country: None (occurrence: None)
  Receive Date: 20081219
  Receipt Date: 20081208
  Transmission Date: 20090506
  Serious: Yes (Other)
  Sender: FDA-Public Use
  Company Number: US-BAXTER-2008BH013546

PATIENT
  Age: 67 Year
  Sex: Male

DRUGS (4)
  1. DIANEAL [Suspect]
     Indication: RENAL FAILURE CHRONIC
     Route: 033
     Dates: end: 20080501
  2. DIANEAL [Suspect]
     Route: 033
     Dates: start: 20081101
  3. DIANEAL [Suspect]
     Indication: RENAL FAILURE CHRONIC
     Route: 033
     Dates: end: 20080501
  4. DIANEAL [Suspect]
     Route: 033
     Dates: start: 20081101

REACTIONS (1)
  - FUNGAL PERITONITIS [None]
